FAERS Safety Report 5588126-0 (Version None)
Quarter: 2008Q1

REPORT INFORMATION
  Report Type: 
  Country: None (occurrence: None)
  Receive Date: 20080111
  Receipt Date: 20080104
  Transmission Date: 20080703
  Serious: Yes (Death)
  Sender: FDA-Public Use
  Company Number: US-JNJFOC-20080101946

PATIENT
  Age: 53 Year
  Sex: Female

DRUGS (4)
  1. TRAMADOL HCL [Suspect]
     Indication: SUICIDE ATTEMPT
     Route: 048
  2. VENLAFAXINE HCL [Suspect]
     Indication: SUICIDE ATTEMPT
     Route: 065
  3. PREGABALIN [Suspect]
     Indication: SUICIDE ATTEMPT
     Route: 065
  4. TIZANIDINE HCL [Suspect]
     Indication: COMPLETED SUICIDE
     Route: 065

REACTIONS (2)
  - COMPLETED SUICIDE [None]
  - DRUG TOXICITY [None]
